FAERS Safety Report 15285722 (Version 1)
Quarter: 2018Q3

REPORT INFORMATION
  Report Type: Spontaneous
  Country: US (occurrence: US)
  Receive Date: 20180802
  Receipt Date: 20180802
  Transmission Date: 20181010
  Serious: Yes (Disabling)
  Sender: FDA-Public Use
  Company Number: None

PATIENT
  Age: 66 Year
  Sex: Male
  Weight: 103.5 kg

DRUGS (1)
  1. MUSINEX DM [Suspect]
     Active Substance: DEXTROMETHORPHAN HYDROBROMIDE\GUAIFENESIN
     Indication: SINUS CONGESTION
     Dosage: ?          QUANTITY:1 TABLET(S);? ?
     Route: 048
     Dates: start: 20180712, end: 20180720

REACTIONS (1)
  - Confusional state [None]

NARRATIVE: CASE EVENT DATE: 20180712
